FAERS Safety Report 4537012-3 (Version None)
Quarter: 2004Q4

REPORT INFORMATION
  Report Type: 
  Country: None (occurrence: None)
  Receive Date: 20041220
  Receipt Date: 20041203
  Transmission Date: 20050328
  Serious: Yes (Life-Threatening, Hospitalization, Disabling)
  Sender: FDA-Public Use
  Company Number: 9379

PATIENT
  Age: 65 Year
  Sex: Male

DRUGS (4)
  1. AMIODARONE [Suspect]
     Indication: ATRIAL FIBRILLATION
     Dosage: 1.2 G FREQ IV
     Route: 042
     Dates: start: 20041126, end: 20041128
  2. LEFLUNOMIDE [Suspect]
     Indication: RHEUMATOID ARTHRITIS
     Dosage: 20 MG FREQ PO
     Route: 048
     Dates: start: 20041108, end: 20041126
  3. PREDNISOLONE [Concomitant]
  4. ACETAMINOPHEN [Concomitant]

REACTIONS (3)
  - HEPATIC FAILURE [None]
  - INTERSTITIAL LUNG DISEASE [None]
  - RENAL FAILURE ACUTE [None]
